FAERS Safety Report 7908556-9 (Version None)
Quarter: 2011Q4

REPORT INFORMATION
  Report Type: 
  Country: None (occurrence: None)
  Receive Date: 20111111
  Receipt Date: 20111108
  Transmission Date: 20120403
  Serious: Yes (Other)
  Sender: FDA-Public Use
  Company Number: FR-PFIZER INC-2011206685

PATIENT
  Age: 34 Year
  Sex: Female
  Weight: 48 kg

DRUGS (3)
  1. LEXOMIL [Concomitant]
     Indication: SLEEP DISORDER
     Dosage: 6 MG DAILY
     Route: 048
     Dates: start: 20070101
  2. LEXOMIL [Concomitant]
     Indication: ANXIETY
  3. CELEBREX [Suspect]
     Indication: ANKYLOSING SPONDYLITIS
     Dosage: 200 MG, 1X/DAY
     Dates: start: 20110501

REACTIONS (6)
  - RASH [None]
  - POLYURIA [None]
  - WEIGHT DECREASED [None]
  - TRANSAMINASES INCREASED [None]
  - GAMMA-GLUTAMYLTRANSFERASE INCREASED [None]
  - DRUG INEFFECTIVE [None]
